FAERS Safety Report 23598961 (Version 1)
Quarter: 2024Q1

REPORT INFORMATION
  Report Type: Spontaneous
  Country: FR (occurrence: None)
  Receive Date: 20240306
  Receipt Date: 20240306
  Transmission Date: 20240410
  Serious: Yes (Hospitalization)
  Sender: FDA-Public Use
  Company Number: 2024A051889

PATIENT
  Age: 66 Year
  Sex: Female
  Weight: 123 kg

DRUGS (1)
  1. DAPAGLIFLOZIN [Suspect]
     Active Substance: DAPAGLIFLOZIN
     Indication: Type 2 diabetes mellitus
     Dosage: 10 MG IN THE MORNING
     Route: 048
     Dates: start: 20240112, end: 20240129

REACTIONS (2)
  - Disease recurrence [Recovering/Resolving]
  - Genital candidiasis [Recovering/Resolving]

NARRATIVE: CASE EVENT DATE: 20240129
